FAERS Safety Report 10649913 (Version 1)
Quarter: 2014Q4

REPORT INFORMATION
  Report Type: Spontaneous
  Country: US (occurrence: None)
  Receive Date: 20141205
  Receipt Date: 20141205
  Transmission Date: 20150529
  Serious: No
  Sender: FDA-Public Use
  Company Number: 163-POMAL-14085851

PATIENT
  Age: 63 Year
  Sex: Female
  Weight: 69.85 kg

DRUGS (12)
  1. VITAMIN B12 [Concomitant]
     Active Substance: CYANOCOBALAMIN
  2. POMALYST [Suspect]
     Active Substance: POMALIDOMIDE
     Indication: PLASMA CELL MYELOMA
     Route: 048
     Dates: start: 201307
  3. TRAMADOL HYDROCHLORIDE. [Concomitant]
     Active Substance: TRAMADOL HYDROCHLORIDE
  4. MULTIVITAMINS [Concomitant]
     Active Substance: VITAMINS
  5. PREDNISONE. [Concomitant]
     Active Substance: PREDNISONE
  6. VALACYCLOVIR HCL (VALACICLOVIR HYDROCHLORIDE) [Concomitant]
  7. ASPIRIN EC (ACETYLSALICYLIC ACID) [Concomitant]
  8. VITAMIN C [Concomitant]
     Active Substance: ASCORBIC ACID
  9. BIOTIN [Concomitant]
     Active Substance: BIOTIN
  10. BACTRIM DS (BACTRIM) [Concomitant]
  11. LOTRIMIN (CLOTRIMAZOLE) [Concomitant]
  12. ALBUMIN [Concomitant]
     Active Substance: ALBUMIN (HUMAN)

REACTIONS (2)
  - Nasopharyngitis [None]
  - Drug dose omission [None]

NARRATIVE: CASE EVENT DATE: 20140821
